FAERS Safety Report 18573751 (Version 1)
Quarter: 2020Q4

REPORT INFORMATION
  Report Type: Spontaneous
  Country: GB (occurrence: GB)
  Receive Date: 20201203
  Receipt Date: 20201203
  Transmission Date: 20210114
  Serious: Yes (Other)
  Sender: FDA-Public Use
  Company Number: GB-ACCORD-209414

PATIENT
  Age: 71 Year
  Sex: Female
  Weight: 58.51 kg

DRUGS (2)
  1. ADCAL-D3 [Concomitant]
     Active Substance: CALCIUM CARBONATE\CHOLECALCIFEROL
  2. AMITRIPTYLINE [Suspect]
     Active Substance: AMITRIPTYLINE
     Indication: IRRITABLE BOWEL SYNDROME
     Dosage: AT NIGHT
     Route: 048
     Dates: start: 20190204, end: 20201110

REACTIONS (2)
  - Glaucoma [Not Recovered/Not Resolved]
  - Visual field defect [Unknown]

NARRATIVE: CASE EVENT DATE: 20201102
